FAERS Safety Report 8884378 (Version 2)
Quarter: 2014Q1

REPORT INFORMATION
  Report Type: Spontaneous
  Country: US (occurrence: US)
  Receive Date: 20121102
  Receipt Date: 20140107
  Transmission Date: 20141002
  Serious: No
  Sender: FDA-Public Use
  Company Number: US-ASTRAZENECA-2012SE22332

PATIENT
  Age: 768 Month
  Sex: Female
  Weight: 63.5 kg

DRUGS (11)
  1. CRESTOR [Suspect]
     Indication: BLOOD CHOLESTEROL INCREASED
     Route: 048
     Dates: start: 2008
  2. CRESTOR [Suspect]
     Indication: BLOOD CHOLESTEROL INCREASED
     Route: 048
     Dates: start: 2010
  3. CRESTOR [Suspect]
     Indication: BLOOD CHOLESTEROL INCREASED
     Route: 048
  4. LISINOPRIL [Suspect]
     Indication: BLOOD PRESSURE
     Route: 048
     Dates: start: 201201
  5. METFORMIN [Concomitant]
     Indication: DIABETES MELLITUS
     Route: 048
     Dates: start: 2011
  6. LEVOTHYROXINE [Concomitant]
     Indication: THYROID DISORDER
     Route: 048
     Dates: start: 20131218
  7. ADVIL [Concomitant]
     Indication: PAIN
     Route: 048
     Dates: start: 201008
  8. GABAPENTIN [Concomitant]
     Indication: NEURALGIA
     Route: 048
     Dates: start: 201101
  9. OSTEOBIFLEX [Concomitant]
     Indication: PAIN IN EXTREMITY
     Route: 048
     Dates: start: 2008
  10. PAXIL [Concomitant]
     Indication: ANXIETY
     Route: 048
     Dates: start: 201308
  11. AMLODIPINE [Concomitant]
     Indication: HYPERTENSION
     Route: 048
     Dates: start: 201307

REACTIONS (10)
  - Limb injury [Unknown]
  - Posture abnormal [Unknown]
  - Chest discomfort [Unknown]
  - Back pain [Unknown]
  - Chest pain [Unknown]
  - Burning sensation [Unknown]
  - Intervertebral disc protrusion [Unknown]
  - Neuralgia [Unknown]
  - Diabetes mellitus [Unknown]
  - Pain in extremity [Unknown]
